FAERS Safety Report 6600631-4 (Version None)
Quarter: 2010Q1

REPORT INFORMATION
  Report Type: 
  Country: None (occurrence: None)
  Receive Date: 20100223
  Receipt Date: 20100223
  Transmission Date: 20100710
  Serious: Yes (Other)
  Sender: FDA-Public Use
  Company Number: None

PATIENT
  Age: 66 Year
  Sex: Female
  Weight: 61.2356 kg

DRUGS (1)
  1. RECLAST [Suspect]
     Indication: OSTEOPENIA
     Dosage: 5MG ONCE IV DRIP
     Route: 041
     Dates: start: 20100219, end: 20100219

REACTIONS (6)
  - ABDOMINAL PAIN [None]
  - CHEST DISCOMFORT [None]
  - FEELING ABNORMAL [None]
  - FLANK PAIN [None]
  - INFLUENZA LIKE ILLNESS [None]
  - PAIN [None]
